FAERS Safety Report 11455213 (Version 3)
Quarter: 2015Q4

REPORT INFORMATION
  Report Type: Report from Study
  Country: NZ (occurrence: NZ)
  Receive Date: 20150903
  Receipt Date: 20151009
  Transmission Date: 20160304
  Serious: Yes (Other)
  Sender: FDA-Public Use
  Company Number: NZ-ABBVIE-15K-118-1432691-00

PATIENT
  Sex: Female
  Weight: 53 kg

DRUGS (2)
  1. HUMIRA [Suspect]
     Active Substance: ADALIMUMAB
     Route: 065
     Dates: end: 20150810
  2. HUMIRA [Suspect]
     Active Substance: ADALIMUMAB
     Indication: CROHN^S DISEASE
     Dosage: 4 X 40MG
     Route: 065
     Dates: start: 20140706, end: 20140706

REACTIONS (19)
  - Anxiety [Not Recovered/Not Resolved]
  - Oral mucosal discolouration [Unknown]
  - Insomnia [Unknown]
  - Malaise [Unknown]
  - Weight decreased [Unknown]
  - Unevaluable event [Unknown]
  - Feeling abnormal [Unknown]
  - Urinary tract infection [Not Recovered/Not Resolved]
  - Dysgeusia [Unknown]
  - Suicidal ideation [Recovering/Resolving]
  - Panic attack [Unknown]
  - Stress [Unknown]
  - Dyspnoea exertional [Unknown]
  - Urinary tract infection [Recovered/Resolved]
  - Fear [Unknown]
  - Pollakiuria [Unknown]
  - Paraesthesia [Unknown]
  - Fatigue [Unknown]
  - Anxiety [Unknown]
